FAERS Safety Report 7353468-5 (Version None)
Quarter: 2011Q1

REPORT INFORMATION
  Report Type: 
  Country: None (occurrence: None)
  Receive Date: 20110315
  Receipt Date: 20110308
  Transmission Date: 20110831
  Serious: Yes (Other)
  Sender: FDA-Public Use
  Company Number: US-SANOFI-AVENTIS-2011SA014919

PATIENT
  Age: 65 Year
  Sex: Female

DRUGS (1)
  1. LANTUS [Suspect]
     Indication: TYPE 2 DIABETES MELLITUS
     Dosage: 75 UNITS IN THE AM AND 25 IN THE PM
     Route: 058

REACTIONS (3)
  - VASCULAR OCCLUSION [None]
  - CORONARY ARTERY BYPASS [None]
  - WHEELCHAIR USER [None]
